FAERS Safety Report 4836978-1 (Version None)
Quarter: 2005Q4

REPORT INFORMATION
  Report Type: 
  Country: None (occurrence: None)
  Receive Date: 20051117
  Receipt Date: 20051104
  Transmission Date: 20060501
  Serious: No
  Sender: FDA-Public Use
  Company Number: 05-NIP00120

PATIENT
  Age: 44 Year
  Sex: Female

DRUGS (5)
  1. NIPENT [Suspect]
     Indication: T-CELL LYMPHOMA
  2. METHOTREXATE [Concomitant]
  3. ETANERCEPT [Concomitant]
  4. TBI [Concomitant]
  5. HIGH DOSE CHEMOTHERAPY [Concomitant]

REACTIONS (2)
  - COLON CANCER [None]
  - THERAPY NON-RESPONDER [None]
